FAERS Safety Report 5234884-4 (Version None)
Quarter: 2007Q1

REPORT INFORMATION
  Report Type: 
  Country: None (occurrence: None)
  Receive Date: 20070209
  Receipt Date: 20070131
  Transmission Date: 20070707
  Serious: Yes (Death, Life-Threatening, Hospitalization, Disabling)
  Sender: FDA-Public Use
  Company Number: PH-MERCK-0605PHL00008

PATIENT
  Age: 77 Year
  Sex: Female

DRUGS (1)
  1. ZOCOR [Suspect]
     Indication: HYPERCHOLESTEROLAEMIA
     Route: 048
     Dates: start: 20020101, end: 20020101

REACTIONS (1)
  - PULMONARY EMBOLISM [None]
